FAERS Safety Report 9779169 (Version 2)
Quarter: 2013Q4

REPORT INFORMATION
  Report Type: Spontaneous
  Country: US (occurrence: US)
  Receive Date: 20131223
  Receipt Date: 20131223
  Transmission Date: 20140711
  Serious: No
  Sender: FDA-Public Use
  Company Number: US-ENDO PHARMACEUTICALS INC.-OPCR20130347

PATIENT
  Age: 49 Year
  Sex: Female
  Weight: 90.8 kg

DRUGS (9)
  1. OPANA ER 10MG [Suspect]
     Indication: ARTHRITIS
     Route: 048
     Dates: start: 20130903, end: 20130910
  2. OPANA ER 10MG [Suspect]
     Indication: NEURALGIA
     Route: 048
     Dates: start: 20130910, end: 20130924
  3. OPANA ER 10MG [Suspect]
     Indication: INTERVERTEBRAL DISC DEGENERATION
  4. OPANA ER 10MG [Suspect]
     Indication: PAIN
  5. CARISOPRODOL [Concomitant]
     Indication: PRODUCT USED FOR UNKNOWN INDICATION
     Dosage: UNK
     Route: 048
  6. LISINOPRIL/HYDROCHLOROTHIAZIDE [Concomitant]
     Indication: PRODUCT USED FOR UNKNOWN INDICATION
     Dosage: 10/12.5 MG
     Route: 048
  7. SYNTHROID [Concomitant]
     Indication: PRODUCT USED FOR UNKNOWN INDICATION
     Dosage: UNKI
     Route: 048
  8. LIPITOR [Concomitant]
     Indication: PRODUCT USED FOR UNKNOWN INDICATION
     Dosage: 20 MG
     Route: 048
  9. ESTRADIOL [Concomitant]
     Indication: PRODUCT USED FOR UNKNOWN INDICATION
     Dosage: 2 MG
     Route: 048

REACTIONS (9)
  - Panic attack [Not Recovered/Not Resolved]
  - Muscle twitching [Not Recovered/Not Resolved]
  - Insomnia [Not Recovered/Not Resolved]
  - Pruritus [Not Recovered/Not Resolved]
  - Dyspnoea [Not Recovered/Not Resolved]
  - Palpitations [Not Recovered/Not Resolved]
  - Drug ineffective [Not Recovered/Not Resolved]
  - Anxiety [Unknown]
  - Heart rate increased [Recovered/Resolved]
